FAERS Safety Report 7085876-4 (Version None)
Quarter: 2010Q4

REPORT INFORMATION
  Report Type: 
  Country: None (occurrence: None)
  Receive Date: 20101007
  Receipt Date: 20100728
  Transmission Date: 20110411
  Serious: No
  Sender: FDA-Public Use
  Company Number: 2010IP000086

PATIENT
  Age: 68 Year
  Sex: Female

DRUGS (5)
  1. BEPREVE [Suspect]
     Indication: EYE PRURITUS
     Dosage: 1 GTT; BID; OPH
     Route: 047
     Dates: start: 20100722, end: 20100728
  2. ATENOLOL [Concomitant]
  3. PROCARDIA XL [Concomitant]
  4. HYDROCHLOROTHIAZIDE [Concomitant]
  5. PROTONIX [Concomitant]

REACTIONS (2)
  - DRUG INEFFECTIVE [None]
  - OCULAR HYPERAEMIA [None]
